FAERS Safety Report 5244390-9 (Version None)
Quarter: 2007Q1

REPORT INFORMATION
  Report Type: 
  Country: None (occurrence: None)
  Receive Date: 20070222
  Receipt Date: 20070219
  Transmission Date: 20070707
  Serious: Yes (Death, Hospitalization)
  Sender: FDA-Public Use
  Company Number: US-BRISTOL-MYERS SQUIBB COMPANY-13686464

PATIENT
  Age: 61 Year
  Sex: Female

DRUGS (1)
  1. COUMADIN [Suspect]
     Indication: THROMBOSIS
     Dates: start: 20060101

REACTIONS (4)
  - CEREBRAL HAEMORRHAGE [None]
  - DEATH [None]
  - HEADACHE [None]
  - VOMITING [None]
